FAERS Safety Report 16474697 (Version 1)
Quarter: 2019Q2

REPORT INFORMATION
  Report Type: Report from Study
  Country: US (occurrence: US)
  Receive Date: 20190625
  Receipt Date: 20190625
  Transmission Date: 20190711
  Serious: Yes (Other)
  Sender: FDA-Public Use
  Company Number: US-BAYER-2019-118148

PATIENT
  Age: 57 Year
  Sex: Female

DRUGS (1)
  1. STIVARGA [Suspect]
     Active Substance: REGORAFENIB
     Indication: COLORECTAL CANCER
     Dosage: 80MG EVERY OTHER DAY ALTERNATING WITH 120MG FOR 21 DAYS OF 28 DAY CYCLE
     Dates: start: 20190611

REACTIONS (3)
  - Neuropathy peripheral [Not Recovered/Not Resolved]
  - Off label use [None]
  - Oropharyngeal pain [Not Recovered/Not Resolved]
